FAERS Safety Report 11752070 (Version 2)
Quarter: 2016Q1

REPORT INFORMATION
  Report Type: Spontaneous
  Country: US (occurrence: US)
  Receive Date: 20151118
  Receipt Date: 20160124
  Transmission Date: 20160525
  Serious: Yes (Other)
  Sender: FDA-Public Use
  Company Number: US-009507513-1511USA009084

PATIENT
  Age: 68 Year
  Sex: Male
  Weight: 82.27 kg

DRUGS (8)
  1. PREDNISONE. [Concomitant]
     Active Substance: PREDNISONE
     Dosage: 20 MG X 2 DAYS
     Route: 048
     Dates: start: 20150704, end: 20150705
  2. ATARAX [Concomitant]
     Active Substance: HYDROXYZINE\HYDROXYZINE HYDROCHLORIDE
     Dosage: 25 MG, TID PRN (THRICE DAILY, AS NEEDED)
     Route: 048
     Dates: start: 20150527
  3. PREDNISONE. [Concomitant]
     Active Substance: PREDNISONE
     Dosage: 30 MG X 2 DAYS
     Route: 048
     Dates: start: 20150702, end: 20150703
  4. KEYTRUDA [Suspect]
     Active Substance: PEMBROLIZUMAB
     Indication: MALIGNANT MELANOMA
     Dosage: 175 MG, UNK
     Route: 042
     Dates: start: 20141210, end: 20151021
  5. KEFLEX [Concomitant]
     Active Substance: CEPHALEXIN
     Dosage: 500 MG, QD (TAKE ONE)
     Route: 048
  6. PREDNISONE. [Concomitant]
     Active Substance: PREDNISONE
     Dosage: 10 MG X 2 DAYS
     Route: 048
     Dates: start: 20150706, end: 20150707
  7. CLINDAMYCIN PHOSPHATE. [Concomitant]
     Active Substance: CLINDAMYCIN PHOSPHATE
     Indication: DERMATITIS ACNEIFORM
     Dosage: 1 APPLICATION, BID  (TWICE DAILY)
     Route: 061
     Dates: start: 20150209
  8. PREDNISONE. [Concomitant]
     Active Substance: PREDNISONE
     Dosage: 40 MG X 3 DAYS
     Route: 048
     Dates: start: 20150629, end: 20150701

REACTIONS (10)
  - Arthropod bite [Unknown]
  - Hypercalcaemia [Unknown]
  - Anxiety [Unknown]
  - Hypothyroidism [Unknown]
  - Cellulitis [Unknown]
  - Gait disturbance [Unknown]
  - Bone pain [Unknown]
  - Temperature intolerance [Unknown]
  - Pemphigoid [Recovering/Resolving]
  - Fatigue [Unknown]

NARRATIVE: CASE EVENT DATE: 20151008
